FAERS Safety Report 17020471 (Version 1)
Quarter: 2019Q4

REPORT INFORMATION
  Report Type: Spontaneous
  Country: US (occurrence: US)
  Receive Date: 20191005
  Receipt Date: 20191005
  Transmission Date: 20200122
  Serious: Yes (Hospitalization)
  Sender: FDA-Public Use
  Company Number: None

PATIENT
  Age: 32 Year
  Sex: Male
  Weight: 177 kg

DRUGS (6)
  1. DAUNORUBICIN [Suspect]
     Active Substance: DAUNORUBICIN
     Dates: end: 20190806
  2. ONCASPAR [Suspect]
     Active Substance: PEGASPARGASE
     Dosage: ?          OTHER DOSE:3750 UNIT;?
     Dates: end: 20190726
  3. CYTARABINE. [Suspect]
     Active Substance: CYTARABINE
     Dates: end: 20190723
  4. VINCRISTINE [Suspect]
     Active Substance: VINCRISTINE
     Dates: end: 20190806
  5. DEXAMETHASONE. [Suspect]
     Active Substance: DEXAMETHASONE
     Dates: end: 20190812
  6. METHOTREXATE. [Suspect]
     Active Substance: METHOTREXATE
     Dates: end: 20190730

REACTIONS (6)
  - Alanine aminotransferase increased [None]
  - Blood bilirubin increased [None]
  - Abdominal pain upper [None]
  - Fatigue [None]
  - Aspartate aminotransferase increased [None]
  - Jaundice [None]

NARRATIVE: CASE EVENT DATE: 20190813
